FAERS Safety Report 7053866-3 (Version None)
Quarter: 2010Q4

REPORT INFORMATION
  Report Type: 
  Country: None (occurrence: None)
  Receive Date: 20101020
  Receipt Date: 20101008
  Transmission Date: 20110411
  Serious: Yes (Hospitalization)
  Sender: FDA-Public Use
  Company Number: DE-WATSON-2010-13649

PATIENT
  Age: 56 Year
  Sex: Female
  Weight: 60 kg

DRUGS (16)
  1. RAMIPRIL [Suspect]
     Indication: HYPERTENSION
     Dosage: 5 MG, BID
     Route: 048
  2. BISOPROLOL [Suspect]
     Indication: CORONARY ARTERY DISEASE
     Dosage: 5 MG, BID
     Route: 048
     Dates: start: 19870101, end: 20080601
  3. DOXAZOSIN MESYLATE [Suspect]
     Indication: HYPERTENSION
     Dosage: 4 MG, UNKNOWN
     Route: 048
  4. DIGITOXIN [Suspect]
     Indication: ATRIAL FIBRILLATION
     Dosage: UNK
     Route: 048
     Dates: start: 20040101, end: 20080601
  5. ALLOPURINOL [Concomitant]
     Indication: HYPERURICAEMIA
     Dosage: 150 MG, DAILY
     Route: 048
  6. DEKRISTOL [Concomitant]
     Indication: RENAL IMPAIRMENT
     Dosage: 20000 IU, DAILY
     Route: 048
  7. RESTEX [Concomitant]
     Indication: RENAL IMPAIRMENT
     Dosage: 1/2 DF, UNK
     Route: 048
  8. RENAGEL                            /01459901/ [Concomitant]
     Indication: RENAL IMPAIRMENT
     Dosage: 800-1600 MG
     Route: 048
  9. PANTHENOL [Concomitant]
     Indication: RENAL IMPAIRMENT
     Dosage: 100 MG, TID
     Route: 048
  10. SIMVASTATIN [Concomitant]
     Indication: CORONARY ARTERY DISEASE
     Dosage: 40 MG, DAILY
     Route: 048
  11. AEQUAMEN [Concomitant]
     Indication: DIZZINESS
     Dosage: 24 MG, UNKNOWN
     Route: 048
  12. PHOS-EX [Concomitant]
     Indication: RENAL IMPAIRMENT
     Dosage: 950 MG, TID
     Route: 048
  13. NEXIUM [Concomitant]
     Indication: PROPHYLAXIS AGAINST GASTROINTESTINAL ULCER
     Dosage: 40 MG, DAILY
     Route: 048
  14. LAXOBERAL [Concomitant]
     Indication: CONSTIPATION
     Dosage: UNK
     Route: 048
     Dates: end: 20080601
  15. ELUTIT-CALCIUM [Concomitant]
     Indication: RENAL IMPAIRMENT
     Dosage: 15 MG, DAILY
     Route: 048
     Dates: end: 20080601
  16. CLEXANE [Concomitant]
     Indication: CORONARY ARTERY DISEASE
     Dosage: 40 MG, DAILY
     Route: 058

REACTIONS (2)
  - BRADYCARDIA [None]
  - HYPOTENSION [None]
